FAERS Safety Report 4390494-2 (Version None)
Quarter: 2004Q2

REPORT INFORMATION
  Report Type: 
  Country: None (occurrence: None)
  Receive Date: 20040630
  Receipt Date: 20040617
  Transmission Date: 20050107
  Serious: Yes (Hospitalization)
  Sender: FDA-Public Use
  Company Number: HQWYE516917JUN04

PATIENT
  Sex: Female

DRUGS (4)
  1. ANGORON (AMIODARONE, TABLET) [Suspect]
     Indication: ATRIAL FIBRILLATION
     Dosage: 200 MG 1X PER 1 DAY
     Route: 048
     Dates: start: 20040112, end: 20040129
  2. CO-AMILOFRUSE (AMILORIDE HYDROCHLORIDE/FUROSEMIDE, ) [Suspect]
     Indication: HYPERTENSION
     Dosage: 400 MG + 5 MG
     Route: 048
     Dates: start: 20040116, end: 20040129
  3. DEPAKENE [Suspect]
     Indication: EPILEPSY
     Dosage: 500 MG 2X PER 1 DAY
     Route: 048
     Dates: start: 20040109, end: 20040129
  4. ACENOCOUMAROL (ACENOCOUMAROL) [Concomitant]

REACTIONS (7)
  - EOSINOPHILIA [None]
  - HAEMATOCRIT DECREASED [None]
  - HAEMOGLOBIN DECREASED [None]
  - HYPERTENSION [None]
  - INFECTION [None]
  - PLEURAL EFFUSION [None]
  - PULMONARY TUBERCULOSIS [None]
